FAERS Safety Report 4481618-7 (Version None)
Quarter: 2004Q3

REPORT INFORMATION
  Report Type: 
  Country: None (occurrence: None)
  Receive Date: 20040921
  Receipt Date: 20040709
  Transmission Date: 20050211
  Serious: Yes (Death)
  Sender: FDA-Public Use
  Company Number: 163-20785-04070267(0)

PATIENT
  Age: 62 Year
  Sex: Male
  Weight: 73.4827 kg

DRUGS (8)
  1. THALOMID [Suspect]
     Indication: MULTIPLE MYELOMA
     Dosage: 150 MG, QD, ORAL
     Route: 048
     Dates: start: 20040428, end: 20040707
  2. ZOLEDRONATE (ZOLEDRONIC ACID) [Suspect]
     Indication: MULTIPLE MYELOMA
  3. COUMADIN [Concomitant]
  4. AMARYL [Concomitant]
  5. METFORMIN HCL [Concomitant]
  6. AMITRIPTYLINE HCL [Concomitant]
  7. PEPCID [Concomitant]
  8. SEPTRA [Concomitant]

REACTIONS (2)
  - DEATH [None]
  - DISEASE PROGRESSION [None]
